FAERS Safety Report 5216787-4 (Version None)
Quarter: 2007Q1

REPORT INFORMATION
  Report Type: 
  Country: None (occurrence: None)
  Receive Date: 20070118
  Receipt Date: 20070111
  Transmission Date: 20070707
  Serious: Yes (Other)
  Sender: FDA-Public Use
  Company Number: GXKR2007BR00759

PATIENT
  Age: 81 Year
  Sex: Male

DRUGS (7)
  1. MIRTAZAPINE [Suspect]
     Indication: DRUG USE FOR UNKNOWN INDICATION
     Dosage: 1/4 TABLET AT NIGHT, ORAL
     Route: 048
  2. ASPIRIN [Concomitant]
  3. ANCORON                  (AMIODARONE HYDROCHLORIDE) [Concomitant]
  4. CARDIZEM [Concomitant]
  5. HIGROTON              (CHLORTALIDONE) [Concomitant]
  6. METAMUCIL               (ISPAGHULA, PLANTAGO OVATA) [Concomitant]
  7. MONOCORDIL               (ISOSORBIDE MONONITRATE) [Concomitant]

REACTIONS (1)
  - BLINDNESS TRANSIENT [None]
